FAERS Safety Report 9417944 (Version 1)
Quarter: 2013Q3

REPORT INFORMATION
  Report Type: Spontaneous
  Country: US (occurrence: US)
  Receive Date: 20130724
  Receipt Date: 20130724
  Transmission Date: 20140515
  Serious: No
  Sender: FDA-Public Use
  Company Number: US-BAUSCH-BL-2012-001001

PATIENT
  Sex: Female

DRUGS (3)
  1. OPCON-A [Suspect]
     Indication: ERYTHEMA OF EYELID
     Dosage: ONE DROP INTO LEFT EYE AS NEEDED
     Route: 047
     Dates: start: 20120917, end: 20120918
  2. OPCON-A [Suspect]
     Indication: EYELID OEDEMA
  3. OPCON-A [Suspect]
     Indication: EYE PRURITUS

REACTIONS (2)
  - Off label use [Recovered/Resolved]
  - Mydriasis [Recovered/Resolved]
